FAERS Safety Report 10236927 (Version 1)
Quarter: 2014Q2

REPORT INFORMATION
  Report Type: Report from Study
  Country: US (occurrence: US)
  Receive Date: 20140613
  Receipt Date: 20140613
  Transmission Date: 20141212
  Serious: No
  Sender: FDA-Public Use
  Company Number: PHEH2014US011927

PATIENT
  Age: 61 Year
  Sex: Male

DRUGS (9)
  1. TASIGNA [Suspect]
     Dosage: 150 MG, BID
     Route: 048
  2. CARVEDILOL [Concomitant]
     Dosage: 6.25 MG, UNK
  3. ATORVASTATIN [Concomitant]
     Dosage: 10 MG, UNK
  4. LOSARTAN POTASSIUM [Concomitant]
     Dosage: 25 MG, UNK
  5. FISH OIL [Concomitant]
  6. VITAMIN D [Concomitant]
     Dosage: 1000 U, UNK
  7. MULTI-VIT [Concomitant]
  8. COQ 10 [Concomitant]
     Dosage: 100 MG, UNK
  9. CLOPIDOGREL [Concomitant]
     Dosage: 75 MG, UNK

REACTIONS (1)
  - Somnolence [Unknown]
